FAERS Safety Report 15691065 (Version 2)
Quarter: 2018Q4

REPORT INFORMATION
  Report Type: Spontaneous
  Country: CA (occurrence: CA)
  Receive Date: 20181205
  Receipt Date: 20181217
  Transmission Date: 20190205
  Serious: Yes (Other)
  Sender: FDA-Public Use
  Company Number: PHHY2018CA153710

PATIENT
  Age: 8 Year
  Sex: Male
  Weight: 30.4 kg

DRUGS (5)
  1. CORTEF [Concomitant]
     Active Substance: HYDROCORTISONE
     Indication: HYPOTHYROIDISM
     Dosage: 7.5 MG, QD (5 MG AM AND 2.5 MG PM)
     Route: 048
     Dates: start: 201705
  2. DDAVP [Concomitant]
     Active Substance: DESMOPRESSIN ACETATE
     Indication: HYPOTHYROIDISM
     Dosage: 0.1 MG, BID
     Route: 048
     Dates: start: 201705
  3. SYNTHROID [Concomitant]
     Active Substance: LEVOTHYROXINE SODIUM
     Indication: HYPOTHYROIDISM
     Dosage: 50 MG, QD
     Route: 048
     Dates: start: 201705
  4. OMNITROPE [Suspect]
     Active Substance: SOMATROPIN
     Indication: ANGIOEDEMA
  5. OMNITROPE [Suspect]
     Active Substance: SOMATROPIN
     Indication: GROWTH HORMONE DEFICIENCY
     Dosage: 0.9 MG, 6QD
     Route: 058
     Dates: start: 20180801, end: 20181113

REACTIONS (5)
  - Disease recurrence [Unknown]
  - Craniopharyngioma [Recovering/Resolving]
  - Neoplasm recurrence [Recovering/Resolving]
  - Epiphysiolysis [Recovering/Resolving]
  - Angioedema [Unknown]

NARRATIVE: CASE EVENT DATE: 2018
